FAERS Safety Report 4579412-1 (Version None)
Quarter: 2005Q1

REPORT INFORMATION
  Report Type: 
  Country: None (occurrence: None)
  Receive Date: 20050209
  Receipt Date: 20050126
  Transmission Date: 20050727
  Serious: Yes (Other)
  Sender: FDA-Public Use
  Company Number: US_0410107406

PATIENT
  Age: 12 Year
  Sex: Male
  Weight: 44 kg

DRUGS (3)
  1. STRATTERA [Suspect]
     Indication: ATTENTION DEFICIT/HYPERACTIVITY DISORDER
     Dosage: 40 MG DAY
  2. WELLBUTRIN SR [Concomitant]
  3. CLONIDINE [Concomitant]

REACTIONS (3)
  - CHEST PAIN [None]
  - DIZZINESS POSTURAL [None]
  - ELECTROCARDIOGRAM QT CORRECTED INTERVAL PROLONGED [None]
